FAERS Safety Report 19473078 (Version 5)
Quarter: 2023Q4

REPORT INFORMATION
  Report Type: Report from Study
  Country: UY (occurrence: UY)
  Receive Date: 20210629
  Receipt Date: 20231225
  Transmission Date: 20240109
  Serious: Yes (Hospitalization, Other)
  Sender: FDA-Public Use
  Company Number: UY-ABBVIE-21K-168-3968624-00

PATIENT
  Age: 79 Year
  Sex: Female

DRUGS (4)
  1. HUMIRA [Suspect]
     Active Substance: ADALIMUMAB
     Indication: Rheumatoid arthritis
     Dosage: FORM STRENGTH: 40 MILLIGRAM?STOP DATE TEXT: FREQUENCY CHANGE
     Route: 058
     Dates: start: 20131001
  2. HUMIRA [Suspect]
     Active Substance: ADALIMUMAB
     Dosage: FORM STRENGTH: 40 MILLIGRAM?STOP DATE TEXT: FREQUENCY CHANGE?LAST ADMIN DATE-2023
     Route: 058
     Dates: start: 2023
  3. HUMIRA [Suspect]
     Active Substance: ADALIMUMAB
     Dosage: FORM STRENGTH: 40 MILLIGRAM?LAST ADMIN DATE- 2023?STOP DATE TEXT: FREQUENCY CHANGE
     Route: 058
     Dates: start: 202301
  4. HUMIRA [Suspect]
     Active Substance: ADALIMUMAB
     Dosage: FORM STRENGTH: 40 MILLIGRAM
     Route: 058
     Dates: start: 2023

REACTIONS (5)
  - Renal disorder [Recovering/Resolving]
  - Renal failure [Not Recovered/Not Resolved]
  - Inflammation [Recovering/Resolving]
  - Mobility decreased [Recovering/Resolving]
  - Gait disturbance [Recovering/Resolving]

NARRATIVE: CASE EVENT DATE: 20210601
